FAERS Safety Report 22541736 (Version 1)
Quarter: 2023Q2

REPORT INFORMATION
  Report Type: Spontaneous
  Country: US (occurrence: None)
  Receive Date: 20230608
  Receipt Date: 20230608
  Transmission Date: 20230722
  Serious: No
  Sender: FDA-Public Use
  Company Number: None

PATIENT
  Sex: Male

DRUGS (1)
  1. OTEZLA [Suspect]
     Active Substance: APREMILAST
     Indication: Psoriasis
     Dosage: 20MG 2 TIMES A DAY BY MOUTH
     Route: 048
     Dates: start: 202305

REACTIONS (5)
  - Drug ineffective [None]
  - Nausea [None]
  - Rash erythematous [None]
  - Pruritus [None]
  - Burning sensation [None]
